FAERS Safety Report 5822211-0 (Version None)
Quarter: 2008Q3

REPORT INFORMATION
  Report Type: 
  Country: None (occurrence: None)
  Receive Date: 20080723
  Receipt Date: 20080723
  Transmission Date: 20090109
  Serious: Yes (Other)
  Sender: FDA-Public Use
  Company Number: None

PATIENT
  Age: 32 Year
  Sex: Female
  Weight: 57.1532 kg

DRUGS (1)
  1. MORPHINE SULFATE [Suspect]
     Indication: CYSTITIS INTERSTITIAL
     Dates: start: 20080625, end: 20080720

REACTIONS (3)
  - OVERDOSE [None]
  - PHARMACEUTICAL PRODUCT COMPLAINT [None]
  - SOMNOLENCE [None]
